FAERS Safety Report 5749619-6 (Version None)
Quarter: 2008Q2

REPORT INFORMATION
  Report Type: 
  Country: None (occurrence: None)
  Receive Date: 20080527
  Receipt Date: 20080519
  Transmission Date: 20081010
  Serious: Yes (Disabling)
  Sender: FDA-Public Use
  Company Number: IT-BAYER-200818667GPV

PATIENT
  Age: 72 Year
  Sex: Male

DRUGS (1)
  1. NEXAVAR [Suspect]
     Indication: METASTASES TO KIDNEY
     Route: 048
     Dates: start: 20080107, end: 20080111

REACTIONS (1)
  - BLINDNESS UNILATERAL [None]
